FAERS Safety Report 4989187-X (Version None)
Quarter: 2006Q2

REPORT INFORMATION
  Report Type: 
  Country: None (occurrence: None)
  Receive Date: 20060425
  Receipt Date: 20060403
  Transmission Date: 20061013
  Serious: Yes (Death, Other)
  Sender: FDA-Public Use
  Company Number: 2005-US-01488

PATIENT
  Age: 80 Year
  Sex: Female
  Weight: 58.9676 kg

DRUGS (2)
  1. CLOZAPINE [Suspect]
     Indication: SCHIZOPHRENIA
     Dosage: 50 MG, BID, ORAL
     Route: 048
     Dates: start: 20020201, end: 20051201
  2. LORAZEPAM [Concomitant]

REACTIONS (2)
  - PNEUMONIA ASPIRATION [None]
  - TARDIVE DYSKINESIA [None]
